FAERS Safety Report 6936173-6 (Version None)
Quarter: 2010Q3

REPORT INFORMATION
  Report Type: 
  Country: None (occurrence: None)
  Receive Date: 20100823
  Receipt Date: 20100811
  Transmission Date: 20110219
  Serious: Yes (Death, Life-Threatening)
  Sender: FDA-Public Use
  Company Number: DK-PFIZER INC-2010059569

PATIENT
  Age: 41 Year
  Sex: Male

DRUGS (2)
  1. ECALTA [Suspect]
     Indication: FUNGAL INFECTION
     Dosage: UNK
     Dates: start: 20100509
  2. AMBISOME [Concomitant]

REACTIONS (1)
  - HAEMORRHAGE [None]
